FAERS Safety Report 7512563-8 (Version None)
Quarter: 2011Q2

REPORT INFORMATION
  Report Type: 
  Country: None (occurrence: None)
  Receive Date: 20110531
  Receipt Date: 20110518
  Transmission Date: 20111010
  Serious: Yes (Other)
  Sender: FDA-Public Use
  Company Number: JP-ROCHE-779256

PATIENT
  Age: 68 Year
  Sex: Male

DRUGS (4)
  1. OXALIPLATIN [Concomitant]
     Route: 042
  2. FLUOROURACIL [Concomitant]
     Dosage: ROUTE: INTRAVENOUS BOLUS, INTRAVENOUS DRIP NOTE: DOSAGE IS UNCERTAIN.
     Route: 050
  3. AVASTIN [Suspect]
     Indication: RECTAL CANCER METASTATIC
     Dosage: NOTE: DOSAGE IS UNCERTAIN.
     Route: 041
  4. LEUCOVORIN CALCIUM [Concomitant]
     Dosage: NOTE: DOSAGE IS UNCERTAIN.
     Route: 041

REACTIONS (2)
  - ARTERIAL RUPTURE [None]
  - CARDIAC TAMPONADE [None]
